FAERS Safety Report 13908490 (Version 1)
Quarter: 2017Q3

REPORT INFORMATION
  Report Type: Report from Study
  Country: ES (occurrence: ES)
  Receive Date: 20170827
  Receipt Date: 20170827
  Transmission Date: 20171127
  Serious: Yes (Hospitalization, Other)
  Sender: FDA-Public Use
  Company Number: ES-CELGENEUS-ESP-2016046503

PATIENT
  Age: 85 Year
  Sex: Male

DRUGS (7)
  1. REVLIMID [Suspect]
     Active Substance: LENALIDOMIDE
     Indication: DIFFUSE LARGE B-CELL LYMPHOMA
     Dosage: 10 MILLIGRAM
     Route: 048
     Dates: start: 20160407
  2. CYSPLATIN [Suspect]
     Active Substance: CISPLATIN
     Indication: DIFFUSE LARGE B-CELL LYMPHOMA
     Dosage: 375 MILLIGRAM/SQ. METER
     Route: 041
     Dates: start: 20160407
  3. OMEPRAZOLE. [Concomitant]
     Active Substance: OMEPRAZOLE
     Indication: GASTRITIS PROPHYLAXIS
     Dosage: 20 MILLIGRAM
     Route: 048
     Dates: start: 20160428
  4. PARACETAMOL [Concomitant]
     Active Substance: ACETAMINOPHEN
     Indication: PYREXIA
     Dosage: 3 GRAM
     Route: 048
     Dates: start: 20160428
  5. GEMCITABINE [Suspect]
     Active Substance: GEMCITABINE\GEMCITABINE HYDROCHLORIDE
     Indication: DIFFUSE LARGE B-CELL LYMPHOMA
     Dosage: 375 MILLIGRAM/SQ. METER
     Route: 041
     Dates: start: 20160407
  6. RITUXIMAB. [Suspect]
     Active Substance: RITUXIMAB
     Indication: DIFFUSE LARGE B-CELL LYMPHOMA
     Dosage: 375 MILLIGRAM/SQ. METER
     Route: 041
     Dates: start: 20160407
  7. RAMIPRIL. [Concomitant]
     Active Substance: RAMIPRIL
     Indication: HYPERTENSION
     Dosage: 2.5 MILLIGRAM
     Route: 048
     Dates: start: 20160428

REACTIONS (10)
  - Respiratory tract infection [Recovered/Resolved]
  - Clumsiness [None]
  - Diarrhoea [None]
  - Cardiotoxicity [Recovered/Resolved]
  - Infection [Recovered/Resolved]
  - Dyspnoea [Recovered/Resolved]
  - Anaemia [Recovering/Resolving]
  - Bicytopenia [Recovered/Resolved]
  - Dysphagia [None]
  - Chest pain [Recovered/Resolved]

NARRATIVE: CASE EVENT DATE: 20160419
